FAERS Safety Report 15603031 (Version 4)
Quarter: 2019Q1

REPORT INFORMATION
  Report Type: Report from Study
  Country: HK (occurrence: HK)
  Receive Date: 20181109
  Receipt Date: 20190225
  Transmission Date: 20190417
  Serious: Yes (Life-Threatening)
  Sender: FDA-Public Use
  Company Number: HK-ASTRAZENECA-2018SF46464

PATIENT
  Age: 15409 Day
  Sex: Male

DRUGS (3)
  1. DURVALUMAB. [Suspect]
     Active Substance: DURVALUMAB
     Indication: HEPATOCELLULAR CARCINOMA
     Route: 042
     Dates: start: 20181107, end: 20181107
  2. DURVALUMAB. [Suspect]
     Active Substance: DURVALUMAB
     Indication: HEPATOCELLULAR CARCINOMA
     Route: 042
     Dates: start: 20181011, end: 20181011
  3. ENTECAVIR. [Concomitant]
     Active Substance: ENTECAVIR
     Indication: HEPATITIS B
     Route: 048

REACTIONS (1)
  - Drug hypersensitivity [Recovered/Resolved]

NARRATIVE: CASE EVENT DATE: 20181107
